FAERS Safety Report 5626792-1 (Version None)
Quarter: 2008Q1

REPORT INFORMATION
  Report Type: 
  Country: None (occurrence: None)
  Receive Date: 20080212
  Receipt Date: 20080128
  Transmission Date: 20080703
  Serious: Yes (Other)
  Sender: FDA-Public Use
  Company Number: B0506610A

PATIENT
  Age: 69 Year
  Sex: Male

DRUGS (3)
  1. AMOXICILLIN TRIHYDRATE = POTASSIUM CLAVULANATE (FORMULATION  (AMOX. TR [Suspect]
     Indication: BRONCHITIS
     Dosage: 875  MG / TWICE PER DAY / ORAL
     Route: 048
  2. ASPIRIN [Concomitant]
  3. HYDROXYUREA [Concomitant]

REACTIONS (4)
  - CHOLESTASIS [None]
  - LIVER INJURY [None]
  - RASH MACULO-PAPULAR [None]
  - VANISHING BILE DUCT SYNDROME [None]
